FAERS Safety Report 4432163-6 (Version None)
Quarter: 2004Q3

REPORT INFORMATION
  Report Type: 
  Country: None (occurrence: None)
  Receive Date: 20040818
  Receipt Date: 20040805
  Transmission Date: 20050211
  Serious: Yes (Hospitalization)
  Sender: FDA-Public Use
  Company Number: 2004010140

PATIENT
  Sex: Female

DRUGS (1)
  1. ROGAINE [Suspect]
     Indication: ALOPECIA
     Dosage: BID, TOPICAL
     Route: 061
     Dates: start: 20031001

REACTIONS (2)
  - SUICIDE ATTEMPT [None]
  - THERAPY NON-RESPONDER [None]
